FAERS Safety Report 15869227 (Version 5)
Quarter: 2019Q1

REPORT INFORMATION
  Report Type: Report from Study
  Country: FR (occurrence: FR)
  Receive Date: 20190125
  Receipt Date: 20190226
  Transmission Date: 20190417
  Serious: Yes (Hospitalization, Other)
  Sender: FDA-Public Use
  Company Number: PHHY2019FR013631

PATIENT
  Age: 48 Year
  Sex: Male
  Weight: 90 kg

DRUGS (9)
  1. SIGNIFOR LAR [Suspect]
     Active Substance: PASIREOTIDE
     Dosage: EACH 4 WEEKS
     Route: 030
     Dates: start: 20190105
  2. DOSTINEX [Concomitant]
     Active Substance: CABERGOLINE
     Indication: DRUG INEFFECTIVE
     Dosage: 0.5 MG, UNK
     Route: 048
     Dates: start: 20181212
  3. DOSTINEX [Concomitant]
     Active Substance: CABERGOLINE
     Dosage: 0.5 MG, UNK
     Route: 048
     Dates: start: 20190117
  4. DOSTINEX [Concomitant]
     Active Substance: CABERGOLINE
     Indication: HYPERPROLACTINAEMIA
     Dosage: 0.5 MG, UNK
     Route: 048
     Dates: start: 20181205
  5. DOSTINEX [Concomitant]
     Active Substance: CABERGOLINE
     Dosage: 0.5 MG, UNK
     Route: 048
     Dates: start: 20181219
  6. SIGNIFOR LAR [Suspect]
     Active Substance: PASIREOTIDE
     Dosage: 40 MG, UNK
     Route: 065
     Dates: start: 20190109
  7. ESIDREX [Concomitant]
     Active Substance: HYDROCHLOROTHIAZIDE
     Indication: HYPERTENSION
     Dosage: 25 MG, BID
     Route: 048
     Dates: start: 20180612
  8. VITAMIN D [Concomitant]
     Active Substance: CHOLECALCIFEROL
     Indication: VITAMIN D DEFICIENCY
     Dosage: 100000 OT, UNK
     Route: 048
     Dates: start: 20171219, end: 20180905
  9. SIGNIFOR LAR [Suspect]
     Active Substance: PASIREOTIDE
     Indication: ACROMEGALY
     Dosage: EACH 4 WEEKS
     Route: 030
     Dates: start: 20180612

REACTIONS (7)
  - Polyuria [Unknown]
  - Weight decreased [Unknown]
  - Diabetic ketoacidosis [Recovered/Resolved]
  - Type 2 diabetes mellitus [Not Recovered/Not Resolved]
  - Polydipsia [Unknown]
  - Pyrexia [Unknown]
  - Asthenia [Unknown]

NARRATIVE: CASE EVENT DATE: 201809
